FAERS Safety Report 18897554 (Version 1)
Quarter: 2021Q1

REPORT INFORMATION
  Report Type: Other
  Country: BE (occurrence: BE)
  Receive Date: 20210215
  Receipt Date: 20210215
  Transmission Date: 20210420
  Serious: Yes (Other)
  Sender: FDA-Public Use
  Company Number: BE-CELLTRION INC.-2021BE001554

PATIENT

DRUGS (1)
  1. RITUXIMAB (UNKNOWN) [Suspect]
     Active Substance: RITUXIMAB
     Route: 065

REACTIONS (3)
  - Autoimmune demyelinating disease [Recovered/Resolved]
  - Off label use [Unknown]
  - Disease recurrence [Recovered/Resolved]
